FAERS Safety Report 7885247-4 (Version None)
Quarter: 2011Q4

REPORT INFORMATION
  Report Type: 
  Country: None (occurrence: None)
  Receive Date: 20111102
  Receipt Date: 20111026
  Transmission Date: 20120403
  Serious: Yes (Death, Hospitalization, Other)
  Sender: FDA-Public Use
  Company Number: JP-PFIZER INC-2011266042

PATIENT
  Age: 71 Year
  Sex: Female

DRUGS (7)
  1. CELECOXIB [Suspect]
     Dosage: UNK
     Route: 048
     Dates: start: 20110725, end: 20110816
  2. GASLON [Suspect]
     Dosage: UNK
     Dates: start: 20110725, end: 20110816
  3. GLYCYRON [Concomitant]
     Dosage: UNK
     Dates: start: 19930101, end: 20110816
  4. LIPITOR [Concomitant]
     Dosage: 10 MG, UNK
     Dates: start: 19930101, end: 20110816
  5. CELESTAMINE TAB [Concomitant]
     Dosage: UNK
     Dates: start: 19930101, end: 20110816
  6. NORVASC [Concomitant]
     Dosage: UNK
     Dates: start: 19930101, end: 20110816
  7. OXATOMIDE [Concomitant]
     Dosage: UNK
     Dates: start: 19930101, end: 20110816

REACTIONS (6)
  - OEDEMA MOUTH [None]
  - PYREXIA [None]
  - BLOOD PRESSURE DECREASED [None]
  - FACE OEDEMA [None]
  - ECZEMA [None]
  - ORAL MUCOSA EROSION [None]
